FAERS Safety Report 5005547-5 (Version None)
Quarter: 2006Q2

REPORT INFORMATION
  Report Type: 
  Country: None (occurrence: None)
  Receive Date: 20060518
  Receipt Date: 20060517
  Transmission Date: 20061013
  Serious: Yes (Other)
  Sender: FDA-Public Use
  Company Number: 200612639EU

PATIENT
  Age: 12 Month
  Sex: Male

DRUGS (1)
  1. NICODERM [Suspect]
     Dosage: 7MG SINGLE DOSE
     Route: 048
     Dates: start: 20060430, end: 20060430

REACTIONS (11)
  - ACCIDENTAL EXPOSURE [None]
  - ACCIDENTAL OVERDOSE [None]
  - BLOOD PRESSURE DECREASED [None]
  - DIARRHOEA [None]
  - HEART RATE INCREASED [None]
  - ILL-DEFINED DISORDER [None]
  - INCORRECT ROUTE OF DRUG ADMINISTRATION [None]
  - LETHARGY [None]
  - MYDRIASIS [None]
  - STARING [None]
  - VOMITING [None]
